FAERS Safety Report 6685904-1 (Version None)
Quarter: 2010Q2

REPORT INFORMATION
  Report Type: 
  Country: None (occurrence: None)
  Receive Date: 20100419
  Receipt Date: 20100405
  Transmission Date: 20101027
  Serious: No
  Sender: FDA-Public Use
  Company Number: US-B.I. PHARMACEUTICALS,INC./RIDGEFIELD-2010-BP-03257BP

PATIENT
  Age: 52 Year
  Sex: Male
  Weight: 95.25 kg

DRUGS (3)
  1. FLOMAX [Suspect]
     Indication: BENIGN PROSTATIC HYPERPLASIA
     Dates: start: 20080101, end: 20100301
  2. BENICAR [Concomitant]
     Dosage: 20 MG
     Dates: start: 20080101
  3. CRESTOR [Concomitant]
     Dosage: 10 MG
     Dates: start: 20080101

REACTIONS (1)
  - GYNAECOMASTIA [None]
